FAERS Safety Report 20697923 (Version 2)
Quarter: 2022Q2

REPORT INFORMATION
  Report Type: Report from Study
  Country: NL (occurrence: NL)
  Receive Date: 20220412
  Receipt Date: 20220415
  Transmission Date: 20220720
  Serious: Yes (Death, Hospitalization, Other)
  Sender: FDA-Public Use
  Company Number: NL-ABBVIE-22K-114-4353492-00

PATIENT
  Sex: Female

DRUGS (10)
  1. CARBIDOPA\LEVODOPA [Suspect]
     Active Substance: CARBIDOPA\LEVODOPA
     Indication: Parkinson^s disease
     Route: 050
     Dates: start: 20171024
  2. CARBIDOPA\LEVODOPA [Suspect]
     Active Substance: CARBIDOPA\LEVODOPA
     Dosage: MD: 5.5 ML, CD: 3.2  ML/H, ED: 1.0 ML, CND: 2.2 ML/H ?DURATION REMAINS AT 16 HOURS
     Route: 050
  3. CARBIDOPA\LEVODOPA [Suspect]
     Active Substance: CARBIDOPA\LEVODOPA
     Dosage: MD:5.5 ML, CD:3.2 ML/H, ED:1.0 ML, CND:2.4 ML/H, END:1.0 ML  DURATION:REMAINS AT 24 HOURS
     Route: 050
  4. CARBIDOPA\LEVODOPA [Suspect]
     Active Substance: CARBIDOPA\LEVODOPA
     Dosage: CND: 2.4 ML/H, END: 1.0 ML  DURATION : REMAINS AT 16 HOURS
     Route: 050
  5. CARBIDOPA\LEVODOPA [Suspect]
     Active Substance: CARBIDOPA\LEVODOPA
     Dosage: MD:5.5 ML, CD:3.4  ML/H, ED:1.0 ML, CND:2.5 ML/H, END:1.0 ML DURATION:REMAINS AT 24 HOURS
     Route: 050
  6. CARBIDOPA\LEVODOPA [Suspect]
     Active Substance: CARBIDOPA\LEVODOPA
     Dosage: MD: 5.5 ML, CD: 3.5  ML/H, ED: 1.0  DURATION : REMAINS AT 24 HOURS
     Route: 050
  7. CARBIDOPA\LEVODOPA [Suspect]
     Active Substance: CARBIDOPA\LEVODOPA
     Dosage: MD: 5.5 ML, CD: 3.6  ML/H, ED: 1.0
     Route: 050
  8. CARBIDOPA\LEVODOPA [Suspect]
     Active Substance: CARBIDOPA\LEVODOPA
     Dosage: MD:5.5 ML, CD:3.6  ML/H, ED:1.0 , CND:1.5 ML/H, END: 1.5 ML
     Route: 050
  9. MOVICOLON [Concomitant]
     Active Substance: POLYETHYLENE GLYCOL 3350\POTASSIUM CHLORIDE\SODIUM BICARBONATE\SODIUM CHLORIDE
     Indication: Bowel movement irregularity
     Route: 065
  10. RIVASTIGMINE [Concomitant]
     Active Substance: RIVASTIGMINE
     Indication: Memory impairment
     Dosage: RIVASTIGMINE PLASTERS
     Route: 065
     Dates: start: 20181201

REACTIONS (2)
  - Pulmonary embolism [Fatal]
  - Coma [Not Recovered/Not Resolved]
